FAERS Safety Report 9972147 (Version 1)
Quarter: 2014Q1

REPORT INFORMATION
  Report Type: Spontaneous
  Country: US (occurrence: None)
  Receive Date: 20140305
  Receipt Date: 20140305
  Transmission Date: 20141002
  Serious: No
  Sender: FDA-Public Use
  Company Number: None

PATIENT
  Age: 43 Year
  Sex: Female
  Weight: 52.62 kg

DRUGS (1)
  1. MIRVASO GEL [Suspect]
     Indication: ROSACEA
     Dosage: 5 PEA-SIZE DROPS PER DAY ONCE DAILY APPLIED TO A SURFACE, USUALLY THE SKIN
     Route: 061
     Dates: start: 20140226, end: 20140228

REACTIONS (2)
  - Erythema [None]
  - Flushing [None]
